FAERS Safety Report 21158314 (Version 1)
Quarter: 2022Q3

REPORT INFORMATION
  Report Type: Spontaneous
  Country: US (occurrence: US)
  Receive Date: 20220801
  Receipt Date: 20220801
  Transmission Date: 20221027
  Serious: Yes (Hospitalization)
  Sender: FDA-Public Use
  Company Number: US-LUNDBECK-DKLU3048766

PATIENT
  Age: 15 Month
  Sex: Female
  Weight: 5.6 kg

DRUGS (3)
  1. SABRIL [Suspect]
     Active Substance: VIGABATRIN
     Indication: Infantile spasms
     Route: 048
     Dates: start: 202204
  2. SABRIL [Suspect]
     Active Substance: VIGABATRIN
     Route: 048
  3. SABRIL [Suspect]
     Active Substance: VIGABATRIN
     Route: 048

REACTIONS (1)
  - Laryngotracheal operation [Unknown]
